FAERS Safety Report 21889448 (Version 1)
Quarter: 2023Q1

REPORT INFORMATION
  Report Type: Report from Study
  Country: US (occurrence: US)
  Receive Date: 20230120
  Receipt Date: 20230120
  Transmission Date: 20230418
  Serious: No
  Sender: FDA-Public Use
  Company Number: US-ABBVIE-4272023

PATIENT
  Sex: Female

DRUGS (2)
  1. HUMIRA [Suspect]
     Active Substance: ADALIMUMAB
     Indication: Rheumatoid arthritis
     Route: 058
     Dates: start: 20220812
  2. HUMIRA [Suspect]
     Active Substance: ADALIMUMAB
     Indication: Uveitis

REACTIONS (2)
  - Device difficult to use [Not Recovered/Not Resolved]
  - Visual impairment [Recovering/Resolving]
